FAERS Safety Report 12821491 (Version 4)
Quarter: 2019Q4

REPORT INFORMATION
  Report Type: Report from Study
  Country: US (occurrence: US)
  Receive Date: 20161006
  Receipt Date: 20191226
  Transmission Date: 20200122
  Serious: Yes (Other)
  Sender: FDA-Public Use
  Company Number: US-SA-2016SA169741

PATIENT
  Age: 58 Year
  Sex: Female

DRUGS (3)
  1. PARACETAMOL [Concomitant]
     Active Substance: ACETAMINOPHEN
     Indication: HEADACHE
     Dosage: 2 DF,UNK
     Dates: start: 20160829, end: 20160902
  2. ACICLOVIR [Suspect]
     Active Substance: ACYCLOVIR
     Dosage: UNK UNK,UNK
     Route: 065
     Dates: end: 2016
  3. ALEMTUZUMAB [Suspect]
     Active Substance: ALEMTUZUMAB
     Indication: MULTIPLE SCLEROSIS
     Dosage: 12 MG,QD
     Route: 041
     Dates: start: 20160829, end: 20160902

REACTIONS (23)
  - Hepatic enzyme increased [Not Recovered/Not Resolved]
  - Skin papilloma [Recovered/Resolved]
  - Visual impairment [Not Recovered/Not Resolved]
  - Constipation [Recovering/Resolving]
  - Cataract [Unknown]
  - Thyroid hormones increased [Not Recovered/Not Resolved]
  - Chills [Unknown]
  - Abdominal pain upper [Not Recovered/Not Resolved]
  - Ulcer [Unknown]
  - Dry skin [Recovered/Resolved]
  - Blindness [Unknown]
  - Musculoskeletal chest pain [Unknown]
  - Oral candidiasis [Not Recovered/Not Resolved]
  - Skin exfoliation [Recovered/Resolved]
  - Back pain [Not Recovered/Not Resolved]
  - Band sensation [Unknown]
  - Chromaturia [Not Recovered/Not Resolved]
  - Weight increased [Not Recovered/Not Resolved]
  - Gastrointestinal disorder [Not Recovered/Not Resolved]
  - Back pain [Not Recovered/Not Resolved]
  - Pain [Not Recovered/Not Resolved]
  - Decreased appetite [Unknown]
  - Pyrexia [Unknown]

NARRATIVE: CASE EVENT DATE: 2016
